FAERS Safety Report 6643165-3 (Version None)
Quarter: 2010Q1

REPORT INFORMATION
  Report Type: 
  Country: None (occurrence: None)
  Receive Date: 20100319
  Receipt Date: 20100309
  Transmission Date: 20100710
  Serious: Yes (Hospitalization)
  Sender: FDA-Public Use
  Company Number: PHHY2010SE14060

PATIENT
  Sex: Female

DRUGS (2)
  1. DICLOFENAC [Suspect]
     Indication: PAIN
  2. LITHIUM [Concomitant]
     Indication: BIPOLAR DISORDER
     Dosage: UNK

REACTIONS (5)
  - CARDIAC ARREST [None]
  - CONFUSIONAL STATE [None]
  - DRUG LEVEL INCREASED [None]
  - HYPOTENSION [None]
  - PNEUMONIA [None]
